FAERS Safety Report 10200119 (Version 2)
Quarter: 2014Q2

REPORT INFORMATION
  Report Type: Spontaneous
  Country: US (occurrence: US)
  Receive Date: 20140527
  Receipt Date: 20140527
  Transmission Date: 20141212
  Serious: No
  Sender: FDA-Public Use
  Company Number: US-NOVEN-14US008942

PATIENT
  Age: 5 Year
  Sex: Male

DRUGS (3)
  1. DAYTRANA [Suspect]
     Indication: ATTENTION DEFICIT/HYPERACTIVITY DISORDER
     Dosage: 10 MG (1/2 PATCH), UNK
     Route: 062
     Dates: start: 20140216
  2. DAYTRANA [Suspect]
     Dosage: 10 MG, QD
     Route: 062
     Dates: start: 201402
  3. SINGULAIR [Concomitant]
     Indication: HYPERSENSITIVITY
     Route: 048

REACTIONS (6)
  - Disturbance in attention [Not Recovered/Not Resolved]
  - Drug ineffective [Not Recovered/Not Resolved]
  - Wrong technique in drug usage process [Not Recovered/Not Resolved]
  - Drug prescribing error [Recovered/Resolved]
  - Off label use [Not Recovered/Not Resolved]
  - Product quality issue [Not Recovered/Not Resolved]
